FAERS Safety Report 14924728 (Version 1)
Quarter: 2018Q2

REPORT INFORMATION
  Report Type: Spontaneous
  Country: US (occurrence: US)
  Receive Date: 20180504
  Receipt Date: 20180504
  Transmission Date: 20180711
  Serious: No
  Sender: FDA-Public Use
  Company Number: None

PATIENT
  Age: 27 Year
  Sex: Female
  Weight: 81 kg

DRUGS (1)
  1. AZITHROMYCIN TABLET MACROLIDE ANTIBIOTICS [Suspect]
     Active Substance: AZITHROMYCIN
     Indication: URINARY TRACT INFECTION
     Dosage: ?          QUANTITY:6 CAPSULE(S);?
     Route: 048

REACTIONS (1)
  - Diarrhoea [None]

NARRATIVE: CASE EVENT DATE: 20180322
